FAERS Safety Report 22375178 (Version 1)
Quarter: 2023Q2

REPORT INFORMATION
  Report Type: Report from Study
  Country: US (occurrence: US)
  Receive Date: 20230527
  Receipt Date: 20230527
  Transmission Date: 20230721
  Serious: No
  Sender: FDA-Public Use
  Company Number: US-002147023-NVSC2023US120361

PATIENT
  Sex: Female

DRUGS (1)
  1. COSENTYX [Suspect]
     Active Substance: SECUKINUMAB
     Indication: Axial spondyloarthritis
     Dosage: 150 MG, QMO
     Route: 058

REACTIONS (7)
  - Road traffic accident [Unknown]
  - Neck injury [Unknown]
  - Condition aggravated [Unknown]
  - Back pain [Unknown]
  - Pain in extremity [Unknown]
  - Feeling hot [Unknown]
  - Joint stiffness [Unknown]
